FAERS Safety Report 4865266-2 (Version None)
Quarter: 2005Q4

REPORT INFORMATION
  Report Type: 
  Country: None (occurrence: None)
  Receive Date: 20051220
  Receipt Date: 20051206
  Transmission Date: 20060501
  Serious: Yes (Death, Other)
  Sender: FDA-Public Use
  Company Number: 2005-US-00873

PATIENT
  Age: 47 Year
  Sex: Male

DRUGS (20)
  1. CLOZAPINE [Suspect]
     Indication: SCHIZOPHRENIA
     Dosage: 400 MG, QD, ORAL
     Route: 048
     Dates: start: 20000301, end: 20050701
  2. AZITHROMYCIN [Concomitant]
  3. ZIPRASIDONE [Concomitant]
  4. LORAZEPAM [Concomitant]
  5. ALUDROX /00082501/ [Concomitant]
  6. TRAZODONE [Concomitant]
  7. MAGNESIUM HYDROXIDE TAB [Concomitant]
  8. PARACETAMOL [Concomitant]
  9. DILTIAZEM HCL [Concomitant]
  10. PANTOPRAZOLE [Concomitant]
  11. DOCUSATE SODIUM [Concomitant]
  12. ZIPRASIDONE [Concomitant]
  13. SALBUTAMOL W/IPRATROPIUM [Concomitant]
  14. TERBINAFINE [Concomitant]
  15. CEFTRIAXONE [Concomitant]
  16. SALBUTAMOL [Concomitant]
  17. OXYGEN [Concomitant]
  18. SERETIDE [Concomitant]
  19. NICOTINE [Concomitant]
  20. BREVA [Concomitant]

REACTIONS (1)
  - MYOCARDIAL INFARCTION [None]
